FAERS Safety Report 6165192-5 (Version None)
Quarter: 2009Q2

REPORT INFORMATION
  Report Type: 
  Country: None (occurrence: None)
  Receive Date: 20090423
  Receipt Date: 20090416
  Transmission Date: 20091009
  Serious: Yes (Other)
  Sender: FDA-Public Use
  Company Number: GB-TEVA-191994ISR

PATIENT
  Age: 51 Year
  Sex: Female

DRUGS (2)
  1. AMITRIPTLINE HYDROCHLORIDE TAB [Suspect]
     Route: 048
     Dates: start: 20090101, end: 20090403
  2. PENTOSAN POLYSULFATE SODIUM [Suspect]
     Route: 048
     Dates: end: 20080403

REACTIONS (3)
  - DRUG INTERACTION [None]
  - LOSS OF CONSCIOUSNESS [None]
  - PALPITATIONS [None]
